FAERS Safety Report 4731881-X (Version None)
Quarter: 2005Q3

REPORT INFORMATION
  Report Type: 
  Country: None (occurrence: None)
  Receive Date: 20050725
  Receipt Date: 20041117
  Transmission Date: 20060218
  Serious: Yes (Disabling)
  Sender: FDA-Public Use
  Company Number: WAES 0411USA02976

PATIENT
  Age: 65 Year
  Sex: Male

DRUGS (5)
  1. VIOXX [Suspect]
     Indication: GASTRIC DISORDER
     Dosage: 25 MG/DAILY/PO
     Route: 048
     Dates: start: 20040401
  2. ALLEGRA [Concomitant]
  3. NORVASC [Concomitant]
  4. PRAVACHOL [Concomitant]
  5. NITROGLYCERIN [Concomitant]

REACTIONS (1)
  - ABDOMINAL PAIN UPPER [None]
